FAERS Safety Report 4999912-X (Version None)
Quarter: 2006Q2

REPORT INFORMATION
  Report Type: 
  Country: None (occurrence: None)
  Receive Date: 20060509
  Receipt Date: 20060425
  Transmission Date: 20061013
  Serious: Yes (Other)
  Sender: FDA-Public Use
  Company Number: FR_050907152

PATIENT
  Age: 57 Year
  Sex: Female
  Weight: 90 kg

DRUGS (5)
  1. PROZAC [Suspect]
     Indication: DEPRESSION
     Dosage: 20 MG, 2/D, ORAL; SEE IMAGE
     Route: 048
     Dates: start: 20030101, end: 20050101
  2. PROZAC [Suspect]
     Indication: DEPRESSION
     Dosage: 20 MG, 2/D, ORAL; SEE IMAGE
     Route: 048
     Dates: start: 20050101, end: 20050714
  3. PROZAC [Suspect]
     Indication: DEPRESSION
     Dosage: 20 MG, 2/D, ORAL; SEE IMAGE
     Route: 048
     Dates: start: 20050715, end: 20050901
  4. PROZAC [Suspect]
     Indication: DEPRESSION
     Dosage: 20 MG, 2/D, ORAL; SEE IMAGE
     Route: 048
     Dates: start: 20050901
  5. LEVOTHYROXINE SODIUM [Concomitant]

REACTIONS (3)
  - ASTHENIA [None]
  - CYTOMEGALOVIRUS ANTIGEN POSITIVE [None]
  - HEPATOCELLULAR DAMAGE [None]
